FAERS Safety Report 24212734 (Version 1)
Quarter: 2024Q3

REPORT INFORMATION
  Report Type: Spontaneous
  Country: CA (occurrence: CA)
  Receive Date: 20240815
  Receipt Date: 20240815
  Transmission Date: 20241017
  Serious: Yes (Other)
  Sender: AUROBINDO
  Company Number: CA-AUROBINDO-AUR-APL-2024-040364

PATIENT
  Age: 63 Year
  Sex: Male

DRUGS (3)
  1. TENOFOVIR [Suspect]
     Active Substance: TENOFOVIR
     Indication: Hepatitis B
     Dosage: 300 MILLIGRAM, ONCE A DAY
     Route: 048
  2. TENOFOVIR [Suspect]
     Active Substance: TENOFOVIR
     Indication: HIV infection
     Dosage: UNK
     Route: 065
  3. PANCREATIN [Suspect]
     Active Substance: PANCRELIPASE
     Indication: Dyspepsia
     Dosage: UNK, ONCE A DAY
     Route: 048

REACTIONS (1)
  - Pancreatic carcinoma [Not Recovered/Not Resolved]
